FAERS Safety Report 6670404-5 (Version None)
Quarter: 2010Q2

REPORT INFORMATION
  Report Type: 
  Country: None (occurrence: None)
  Receive Date: 20100407
  Receipt Date: 20100331
  Transmission Date: 20101027
  Serious: Yes (Death)
  Sender: FDA-Public Use
  Company Number: US-BIOGENIDEC-2010BI003638

PATIENT
  Sex: Male

DRUGS (5)
  1. AVONEX [Suspect]
     Indication: MULTIPLE SCLEROSIS
     Route: 030
     Dates: start: 20090601
  2. BACLOFEN [Concomitant]
  3. LASIX [Concomitant]
  4. ASPIRIN [Concomitant]
  5. TOPROL-XL [Concomitant]

REACTIONS (1)
  - WOUND SEPSIS [None]
